FAERS Safety Report 12311317 (Version 1)
Quarter: 2016Q2

REPORT INFORMATION
  Report Type: Spontaneous
  Country: TW (occurrence: TW)
  Receive Date: 20160427
  Receipt Date: 20160427
  Transmission Date: 20160815
  Serious: Yes (Other)
  Sender: FDA-Public Use
  Company Number: TW-BAYER-2016-076607

PATIENT
  Age: 42 Year
  Sex: Female

DRUGS (1)
  1. ACETYLSALICYLIC ACID({=100 MG) [Suspect]
     Active Substance: ASPIRIN
     Indication: THROMBOSIS PROPHYLAXIS

REACTIONS (2)
  - Foetal death [None]
  - Maternal exposure during pregnancy [None]
